FAERS Safety Report 20184197 (Version 3)
Quarter: 2023Q2

REPORT INFORMATION
  Report Type: Spontaneous
  Country: US (occurrence: US)
  Receive Date: 20211214
  Receipt Date: 20230522
  Transmission Date: 20230721
  Serious: Yes (Death)
  Sender: FDA-Public Use
  Company Number: US-EMERGENT BIOSOLUTIONS-21000280SP

PATIENT
  Sex: Male

DRUGS (1)
  1. NARCAN [Suspect]
     Active Substance: NALOXONE HYDROCHLORIDE
     Indication: Product used for unknown indication
     Dosage: 4 MILLIGRAM
     Route: 045
     Dates: start: 20210203

REACTIONS (9)
  - Death [Fatal]
  - Drug withdrawal syndrome [Unknown]
  - Asthenia [Unknown]
  - Fatigue [Unknown]
  - Restlessness [Unknown]
  - Blood pressure fluctuation [Unknown]
  - Abdominal pain upper [Unknown]
  - Dizziness [Unknown]
  - Swelling face [Unknown]

NARRATIVE: CASE EVENT DATE: 20210530
